FAERS Safety Report 7061048-4 (Version None)
Quarter: 2010Q4

REPORT INFORMATION
  Report Type: 
  Country: None (occurrence: None)
  Receive Date: 20101026
  Receipt Date: 20101013
  Transmission Date: 20110411
  Serious: Yes (Other)
  Sender: FDA-Public Use
  Company Number: US-PFIZER INC-2010132010

PATIENT
  Sex: Female
  Weight: 63.492 kg

DRUGS (6)
  1. ZOLOFT [Suspect]
     Indication: DEPRESSION
     Dosage: UNK
  2. EFFEXOR XR [Suspect]
     Indication: SUICIDAL IDEATION
     Dosage: UNK
  3. EFFEXOR XR [Suspect]
     Indication: DEPRESSION
  4. PAXIL [Suspect]
     Indication: SUICIDAL IDEATION
     Dosage: UNK
  5. PAXIL [Suspect]
     Indication: DEPRESSION
  6. VITAMINS [Concomitant]
     Dosage: UNK

REACTIONS (7)
  - ASTHENIA [None]
  - DEPRESSION [None]
  - DRUG ABUSE [None]
  - PHOTOPHOBIA [None]
  - SINUS HEADACHE [None]
  - SUICIDAL IDEATION [None]
  - VISUAL IMPAIRMENT [None]
